FAERS Safety Report 10436952 (Version 1)
Quarter: 2014Q3

REPORT INFORMATION
  Report Type: Report from Study
  Country: AU (occurrence: AU)
  Receive Date: 20140908
  Receipt Date: 20140908
  Transmission Date: 20150326
  Serious: Yes (Hospitalization)
  Sender: FDA-Public Use
  Company Number: AU-SA-2014SA118754

PATIENT
  Age: 61 Year
  Sex: Male

DRUGS (3)
  1. DOCETAXEL [Suspect]
     Active Substance: DOCETAXEL
     Route: 065
  2. CISPLATIN. [Suspect]
     Active Substance: CISPLATIN
     Route: 065
  3. 5 FU [Suspect]
     Active Substance: FLUOROURACIL
     Route: 065

REACTIONS (1)
  - Haemoglobin abnormal [Unknown]
